FAERS Safety Report 10211155 (Version 1)
Quarter: 2014Q2

REPORT INFORMATION
  Report Type: Spontaneous
  Country: US (occurrence: None)
  Receive Date: 20140530
  Receipt Date: 20140530
  Transmission Date: 20141212
  Serious: No
  Sender: FDA-Public Use
  Company Number: None

PATIENT
  Age: 52 Year
  Sex: Male

DRUGS (1)
  1. HUMIRA 40MG ABBVIE [Suspect]
     Indication: PSORIASIS
     Dosage: 60MG, ONCE, SQ
     Dates: start: 20140424, end: 20140424

REACTIONS (2)
  - Haematemesis [None]
  - Diarrhoea [None]
